FAERS Safety Report 18410056 (Version 2)
Quarter: 2020Q4

REPORT INFORMATION
  Report Type: Spontaneous
  Country: US (occurrence: US)
  Receive Date: 20201021
  Receipt Date: 20201110
  Transmission Date: 20210114
  Serious: No
  Sender: FDA-Public Use
  Company Number: US-LEXICON PHARMACEUTICALS, INC-20-1606-00796

PATIENT
  Age: 47 Year
  Sex: Male

DRUGS (1)
  1. XERMELO [Suspect]
     Active Substance: TELOTRISTAT ETHYL
     Indication: NEUROENDOCRINE TUMOUR OF THE LUNG
     Dates: start: 20200829

REACTIONS (2)
  - Therapeutic product effect variable [Not Recovered/Not Resolved]
  - Diarrhoea [Not Recovered/Not Resolved]
